FAERS Safety Report 7528193-8 (Version None)
Quarter: 2011Q2

REPORT INFORMATION
  Report Type: 
  Country: None (occurrence: None)
  Receive Date: 20110607
  Receipt Date: 20110217
  Transmission Date: 20111010
  Serious: No
  Sender: FDA-Public Use
  Company Number: US-ASTRAZENECA-2011SE09757

PATIENT
  Age: 69 Year
  Sex: Male

DRUGS (2)
  1. PRILOSEC [Suspect]
     Route: 048
  2. NEXIUM [Concomitant]

REACTIONS (2)
  - ADVERSE DRUG REACTION [None]
  - OEDEMA PERIPHERAL [None]
